FAERS Safety Report 9549897 (Version 1)
Quarter: 2013Q3

REPORT INFORMATION
  Report Type: Spontaneous
  Country: US (occurrence: US)
  Receive Date: 20130924
  Receipt Date: 20130924
  Transmission Date: 20140515
  Serious: Yes (Hospitalization)
  Sender: FDA-Public Use
  Company Number: CHPA2013US014669

PATIENT
  Sex: Female

DRUGS (5)
  1. EXCEDRIN MIGRAINE [Suspect]
     Indication: MIGRAINE
     Dosage: 1 IN AM AND 1 IN PM AS NEEDED
     Route: 048
     Dates: start: 2001
  2. IBUPROFEN [Suspect]
     Indication: MIGRAINE
     Dosage: UNK, PRN
     Route: 048
  3. IBUPROFEN [Suspect]
     Indication: PAIN
  4. INSULIN [Suspect]
     Indication: DIABETES MELLITUS
     Dosage: UNK,UNK
  5. DARVOCET /00220901/ [Suspect]
     Indication: HEADACHE
     Dosage: UNK,UNK
     Dates: start: 2002

REACTIONS (2)
  - Premature baby [Unknown]
  - Foetal exposure during pregnancy [Unknown]
